FAERS Safety Report 12491748 (Version 1)
Quarter: 2016Q2

REPORT INFORMATION
  Report Type: Spontaneous
  Country: US (occurrence: US)
  Receive Date: 20160623
  Receipt Date: 20160623
  Transmission Date: 20160815
  Serious: Yes (Other)
  Sender: FDA-Public Use
  Company Number: US-SA-2016SA114152

PATIENT
  Age: 48 Year
  Sex: Female

DRUGS (1)
  1. ICY HOT ADVANCED RELIEF (CAMPHOR (SYNTHETIC)\MENTHOL) [Suspect]
     Active Substance: CAMPHOR (SYNTHETIC)\MENTHOL
     Indication: PAIN IN EXTREMITY
     Route: 061
     Dates: start: 20160612

REACTIONS (3)
  - Blister [Unknown]
  - Pain [Unknown]
  - Thermal burn [Unknown]

NARRATIVE: CASE EVENT DATE: 201606
